FAERS Safety Report 4480303-5 (Version None)
Quarter: 2004Q3

REPORT INFORMATION
  Report Type: 
  Country: None (occurrence: None)
  Receive Date: 20040923
  Receipt Date: 20040715
  Transmission Date: 20050211
  Serious: No
  Sender: FDA-Public Use
  Company Number: USA040155752

PATIENT
  Age: 56 Year
  Sex: Female

DRUGS (10)
  1. FORTEO [Suspect]
     Indication: OSTEOPOROSIS
     Dosage: 20 UG/1 DAY
     Dates: start: 20031204
  2. ALTACE [Concomitant]
  3. ACETYLSALICYLIC ACID SRT [Concomitant]
  4. MAXZIDE [Concomitant]
  5. CALTRATE (CALCIUM CARBONATE) [Concomitant]
  6. SYNTHROID [Concomitant]
  7. MAGNESIUM [Concomitant]
  8. VITAMIN E [Concomitant]
  9. VITAMIN C [Concomitant]
  10. MULTI-VITAMIN [Concomitant]

REACTIONS (4)
  - BONE DENSITY DECREASED [None]
  - INJECTION SITE ERYTHEMA [None]
  - PALATAL DISORDER [None]
  - STOMATITIS [None]
